FAERS Safety Report 14046599 (Version 3)
Quarter: 2018Q1

REPORT INFORMATION
  Report Type: Report from Study
  Country: None (occurrence: US)
  Receive Date: 20171005
  Receipt Date: 20180329
  Transmission Date: 20180508
  Serious: Yes (Hospitalization, Other)
  Sender: FDA-Public Use
  Company Number: US-ABBVIE-17K-163-2038235-00

PATIENT
  Age: 54 Year
  Sex: Female
  Weight: 62.65 kg

DRUGS (6)
  1. HUMIRA [Suspect]
     Active Substance: ADALIMUMAB
     Route: 058
     Dates: start: 20170521, end: 201803
  2. LEUCOVORIN. [Concomitant]
     Active Substance: LEUCOVORIN
     Indication: NAUSEA
  3. HUMIRA [Suspect]
     Active Substance: ADALIMUMAB
     Indication: RHEUMATOID ARTHRITIS
     Route: 058
     Dates: start: 201704, end: 2017
  4. METHOTREXATE. [Suspect]
     Active Substance: METHOTREXATE
     Indication: RHEUMATOID ARTHRITIS
     Route: 065
  5. PREDNISONE. [Concomitant]
     Active Substance: PREDNISONE
     Indication: RHEUMATOID ARTHRITIS
  6. RHEUMATE [Concomitant]
     Active Substance: LEVOMEFOLIC ACID\METHYLCOBALAMIN\TURMERIC
     Indication: RHEUMATOID ARTHRITIS

REACTIONS (39)
  - Myocardial infarction [Unknown]
  - Fatigue [Not Recovered/Not Resolved]
  - Visual impairment [Not Recovered/Not Resolved]
  - Peripheral swelling [Unknown]
  - Dyspnoea [Not Recovered/Not Resolved]
  - Vertigo [Unknown]
  - Mobility decreased [Recovered/Resolved]
  - Hot flush [Not Recovered/Not Resolved]
  - Pain [Unknown]
  - Oropharyngeal pain [Unknown]
  - Joint swelling [Unknown]
  - Lymphadenopathy [Unknown]
  - Asthenia [Unknown]
  - Body temperature increased [Unknown]
  - Nausea [Unknown]
  - Injection site pain [Unknown]
  - Incision site erythema [Unknown]
  - Hypoaesthesia [Not Recovered/Not Resolved]
  - Joint stiffness [Unknown]
  - Pain in extremity [Unknown]
  - Femoral artery dissection [Unknown]
  - Rotator cuff syndrome [Unknown]
  - Gait disturbance [Unknown]
  - Chills [Unknown]
  - Feeling hot [Unknown]
  - Feeling abnormal [Unknown]
  - Migraine [Not Recovered/Not Resolved]
  - Bronchitis [Unknown]
  - Dizziness [Not Recovered/Not Resolved]
  - Paraesthesia [Not Recovered/Not Resolved]
  - Musculoskeletal pain [Unknown]
  - Angioplasty [Unknown]
  - Loss of personal independence in daily activities [Unknown]
  - Post procedural discharge [Unknown]
  - Rheumatoid factor increased [Unknown]
  - Arthralgia [Unknown]
  - Injection site pain [Recovered/Resolved]
  - Chest pain [Unknown]
  - Hypertension [Unknown]

NARRATIVE: CASE EVENT DATE: 2017
